FAERS Safety Report 11420910 (Version 2)
Quarter: 2015Q3

REPORT INFORMATION
  Report Type: Spontaneous
  Country: US (occurrence: US)
  Receive Date: 20150826
  Receipt Date: 20150831
  Transmission Date: 20151125
  Serious: Yes (Hospitalization)
  Sender: FDA-Public Use
  Company Number: US-LPDUSPRD-20150626

PATIENT
  Age: 59 Year
  Sex: Female

DRUGS (16)
  1. PERCOCET [Concomitant]
     Active Substance: ACETAMINOPHEN\OXYCODONE HYDROCHLORIDE
     Route: 048
  2. FLUOROURACIL. [Concomitant]
     Active Substance: FLUOROURACIL
     Route: 048
  3. LABETALOL [Concomitant]
     Active Substance: LABETALOL\LABETALOL HYDROCHLORIDE
     Route: 061
  4. BABY ASPIRIN [Concomitant]
     Active Substance: ASPIRIN
     Route: 048
  5. PREDNISONE. [Concomitant]
     Active Substance: PREDNISONE
     Route: 048
  6. VITAMIN D [Concomitant]
     Active Substance: CHOLECALCIFEROL
     Route: 048
  7. DOXYCIN [Concomitant]
     Active Substance: DOXYCYCLINE
     Route: 048
  8. PROBENECID. [Concomitant]
     Active Substance: PROBENECID
     Route: 065
  9. OMEPRAZOLE. [Concomitant]
     Active Substance: OMEPRAZOLE
     Route: 048
  10. SIMVASTATIN. [Concomitant]
     Active Substance: SIMVASTATIN
     Route: 048
  11. PROCARDIA XL [Concomitant]
     Active Substance: NIFEDIPINE
     Route: 048
  12. OXYCODONE [Concomitant]
     Active Substance: OXYCODONE
     Route: 048
  13. INJECTAFER [Suspect]
     Active Substance: FERRIC CARBOXYMALTOSE
     Dosage: 750 MG IN 50 ML NS (1 DOSE)
     Route: 042
     Dates: start: 20150708
  14. SERTRALINE [Concomitant]
     Active Substance: SERTRALINE HYDROCHLORIDE
     Route: 048
  15. TACROLIMUS. [Concomitant]
     Active Substance: TACROLIMUS
     Route: 065
  16. LASIX [Concomitant]
     Active Substance: FUROSEMIDE
     Route: 048

REACTIONS (2)
  - Cellulitis [Not Recovered/Not Resolved]
  - Adverse drug reaction [Not Recovered/Not Resolved]

NARRATIVE: CASE EVENT DATE: 20150709
